FAERS Safety Report 16783895 (Version 1)
Quarter: 2019Q3

REPORT INFORMATION
  Report Type: Spontaneous
  Country: US (occurrence: US)
  Receive Date: 20190909
  Receipt Date: 20190909
  Transmission Date: 20191005
  Serious: Yes (Hospitalization, Other)
  Sender: FDA-Public Use
  Company Number: US-STRIDES ARCOLAB LIMITED-2019SP005714

PATIENT
  Age: 11 Year
  Sex: Female

DRUGS (14)
  1. PREDNISOLONE. [Suspect]
     Active Substance: PREDNISOLONE
     Dosage: 30 MG, DAILY (DECREASED)
     Route: 065
  2. TACROLIMUS. [Suspect]
     Active Substance: TACROLIMUS
     Indication: IMMUNOSUPPRESSANT DRUG THERAPY
     Dosage: UNK
     Route: 065
  3. TACROLIMUS. [Suspect]
     Active Substance: TACROLIMUS
     Dosage: 2 MG, BID (DECREASED)
     Route: 065
  4. RITUXIMAB. [Suspect]
     Active Substance: RITUXIMAB
     Indication: IMMUNOSUPPRESSANT DRUG THERAPY
     Dosage: 375 MG/M2, ALTERNATE WEEK (THREE COURSES)
     Route: 065
  5. CYCLOPHOSPHAMIDE. [Suspect]
     Active Substance: CYCLOPHOSPHAMIDE
     Indication: IMMUNOSUPPRESSANT DRUG THERAPY
     Dosage: 75 MG, DAILY
     Route: 048
  6. PREDNISOLONE. [Suspect]
     Active Substance: PREDNISOLONE
     Indication: IMMUNOSUPPRESSANT DRUG THERAPY
     Dosage: 60 MG, DAILY
     Route: 065
  7. PREDNISOLONE. [Suspect]
     Active Substance: PREDNISOLONE
     Dosage: 5 MG, DAILY
     Route: 065
  8. NYSTATIN. [Concomitant]
     Active Substance: NYSTATIN
     Indication: INFECTION PROPHYLAXIS
     Dosage: UNK
     Route: 065
  9. VALGANCICLOVIR. [Concomitant]
     Active Substance: VALGANCICLOVIR
     Indication: INFECTION PROPHYLAXIS
     Dosage: UNK
     Route: 065
  10. TACROLIMUS. [Suspect]
     Active Substance: TACROLIMUS
     Indication: NEPHROTIC SYNDROME
     Dosage: 5 MG, BID
     Route: 065
  11. MYCOPHENOLATE MOFETIL. [Suspect]
     Active Substance: MYCOPHENOLATE MOFETIL
     Indication: IMMUNOSUPPRESSANT DRUG THERAPY
     Dosage: UNK
     Route: 065
  12. CORTICOTROPIN [Concomitant]
     Active Substance: CORTICOTROPIN
     Indication: NEPHROTIC SYNDROME
     Dosage: 80 UNITS TWICE A WEEK FOR A YEAR
     Route: 065
  13. PREDNISOLONE. [Suspect]
     Active Substance: PREDNISOLONE
     Dosage: 40 MG, DAILY
     Route: 065
  14. TACROLIMUS. [Suspect]
     Active Substance: TACROLIMUS
     Dosage: 5 MG, TID
     Route: 065

REACTIONS (11)
  - Vision blurred [Unknown]
  - Tremor [Recovered/Resolved]
  - Abdominal pain [Unknown]
  - Nocardiosis [Unknown]
  - Myoclonus [Unknown]
  - Confusional state [Unknown]
  - Posterior reversible encephalopathy syndrome [Unknown]
  - Hypertension [Unknown]
  - Drug ineffective for unapproved indication [Unknown]
  - Pyrexia [Unknown]
  - Disease recurrence [Unknown]
